FAERS Safety Report 17678402 (Version 1)
Quarter: 2020Q2

REPORT INFORMATION
  Report Type: Spontaneous
  Country: BR (occurrence: BR)
  Receive Date: 20200417
  Receipt Date: 20200417
  Transmission Date: 20200714
  Serious: Yes (Hospitalization)
  Sender: FDA-Public Use
  Company Number: BR-ABBVIE-20K-020-3340096-00

PATIENT
  Sex: Male

DRUGS (1)
  1. ABBV-066 [Suspect]
     Active Substance: RISANKIZUMAB
     Indication: PSORIASIS
     Dosage: 75MG/0,83ML
     Route: 058
     Dates: start: 20191003

REACTIONS (1)
  - Coronavirus infection [Unknown]
